FAERS Safety Report 20942226 (Version 1)
Quarter: 2022Q2

REPORT INFORMATION
  Report Type: Other
  Country: RO (occurrence: RO)
  Receive Date: 20220610
  Receipt Date: 20220610
  Transmission Date: 20220721
  Serious: Yes (Other)
  Sender: FDA-Public Use
  Company Number: RO-CELLTRION INC.-2022RO008600

PATIENT

DRUGS (19)
  1. INFLIXIMAB [Suspect]
     Active Substance: INFLIXIMAB
     Indication: Product used for unknown indication
     Dosage: 10 MG/KG
     Route: 042
  2. INFLIXIMAB [Suspect]
     Active Substance: INFLIXIMAB
     Dosage: 300 MG (EVERY 8 WEEKS, FROM 2012)
     Route: 042
  3. INFLIXIMAB [Suspect]
     Active Substance: INFLIXIMAB
     Dosage: 300 MG (INITIATED IN MAY 2011 AT WEEK ZERO THEN AT WEEK 2, AND WEEK 6)
     Route: 042
  4. ADALIMUMAB [Suspect]
     Active Substance: ADALIMUMAB
     Indication: Colitis ulcerative
     Dosage: 160/80 MILLIGRAM
     Route: 058
  5. ADALIMUMAB [Suspect]
     Active Substance: ADALIMUMAB
     Indication: Colitis
     Dosage: 40 MG, Q2WEEKS
     Route: 058
  6. TOFACITINIB CITRATE [Suspect]
     Active Substance: TOFACITINIB CITRATE
     Indication: Colitis ulcerative
     Dosage: 20 MG, QD
     Route: 065
     Dates: start: 202010
  7. TOFACITINIB CITRATE [Suspect]
     Active Substance: TOFACITINIB CITRATE
     Dosage: 20 MG, QD (EIGHT WEEKS)
     Route: 065
     Dates: start: 202009
  8. TOFACITINIB CITRATE [Suspect]
     Active Substance: TOFACITINIB CITRATE
     Dosage: 10 MG, QD (EIGHT WEEKS)
     Route: 065
     Dates: start: 202009
  9. MESALAMINE [Suspect]
     Active Substance: MESALAMINE
     Indication: Acute haemorrhagic ulcerative colitis
     Dosage: 2 GRAM
     Route: 048
     Dates: start: 2005
  10. MESALAMINE [Suspect]
     Active Substance: MESALAMINE
     Indication: Colitis
     Dosage: UNK
     Route: 061
     Dates: start: 2009
  11. MESALAMINE [Suspect]
     Active Substance: MESALAMINE
     Dosage: 1 GRAM, QD (INTRARECTAL)
     Route: 065
     Dates: start: 2005
  12. IMURAN [Suspect]
     Active Substance: AZATHIOPRINE
     Indication: Colitis ulcerative
     Dosage: UNK
  13. IMURAN [Suspect]
     Active Substance: AZATHIOPRINE
     Indication: Colitis
     Dosage: 50 MG, QD
     Route: 065
     Dates: start: 2012
  14. PREDNISOLONE ACETATE [Suspect]
     Active Substance: PREDNISOLONE ACETATE
     Indication: Acute haemorrhagic ulcerative colitis
     Dosage: UNK
     Route: 065
     Dates: start: 2005
  15. PREDNISOLONE ACETATE [Suspect]
     Active Substance: PREDNISOLONE ACETATE
     Indication: Colitis
     Dosage: 20 MG, QD (CORTICOTHERAPY)
     Route: 042
     Dates: start: 2011
  16. MESALAMINE [Concomitant]
     Active Substance: MESALAMINE
     Indication: Colitis
     Dosage: 3 GRAM, QD
     Route: 048
  17. MESALAMINE [Concomitant]
     Active Substance: MESALAMINE
     Dosage: 4 GRAM, QD
     Route: 048
     Dates: start: 2011
  18. MESALAMINE [Concomitant]
     Active Substance: MESALAMINE
     Indication: Colitis ulcerative
     Dosage: 2 GRAM, QD
     Route: 065
  19. MESALAMINE [Concomitant]
     Active Substance: MESALAMINE
     Dosage: 1 GRAM, QD
     Route: 065
     Dates: start: 2012

REACTIONS (10)
  - Thrombocytosis [Recovered/Resolved]
  - Neutrophil count increased [Recovered/Resolved]
  - Blood iron decreased [Recovered/Resolved]
  - Colitis [Unknown]
  - C-reactive protein increased [Recovered/Resolved]
  - Haemoglobin decreased [Recovered/Resolved]
  - Red blood cell sedimentation rate increased [Recovered/Resolved]
  - Leukocytosis [Recovered/Resolved]
  - Colitis ulcerative [Unknown]
  - Drug ineffective [Unknown]

NARRATIVE: CASE EVENT DATE: 20200901
